FAERS Safety Report 6491364-6 (Version None)
Quarter: 2009Q4

REPORT INFORMATION
  Report Type: 
  Country: None (occurrence: None)
  Receive Date: 20091211
  Receipt Date: 20091207
  Transmission Date: 20100525
  Serious: Yes (Hospitalization)
  Sender: FDA-Public Use
  Company Number: IT-SANOFI-AVENTIS-2009SA007414

PATIENT
  Age: 69 Year

DRUGS (8)
  1. OXALIPLATIN [Suspect]
     Indication: COLON CANCER
     Route: 041
     Dates: start: 20080428, end: 20080428
  2. OXALIPLATIN [Suspect]
     Route: 041
     Dates: start: 20080225, end: 20080225
  3. FLUOROURACIL [Suspect]
     Indication: COLON CANCER
     Route: 042
     Dates: end: 20080429
  4. FLUOROURACIL [Suspect]
     Route: 042
     Dates: start: 20080225
  5. FOLINIC ACID [Suspect]
     Indication: COLON CANCER
     Route: 042
     Dates: end: 20080429
  6. FOLINIC ACID [Suspect]
     Route: 042
     Dates: start: 20080225
  7. CETUXIMAB [Suspect]
     Indication: COLON CANCER
     Route: 042
     Dates: end: 20080505
  8. CETUXIMAB [Suspect]
     Route: 042
     Dates: start: 20080225

REACTIONS (2)
  - ATRIAL FIBRILLATION [None]
  - DYSPNOEA [None]
